FAERS Safety Report 6465101-5 (Version None)
Quarter: 2009Q4

REPORT INFORMATION
  Report Type: 
  Country: None (occurrence: None)
  Receive Date: 20091201
  Receipt Date: 20091119
  Transmission Date: 20100525
  Serious: Yes (Other)
  Sender: FDA-Public Use
  Company Number: US-MYLANLABS-2009S1020305

PATIENT
  Age: 47 Year
  Sex: Male
  Weight: 74.84 kg

DRUGS (2)
  1. FENTANYL CITRATE [Suspect]
     Indication: MUSCULAR DYSTROPHY
     Dosage: CHANGED Q72H
     Route: 062
     Dates: start: 20050101
  2. FENTANYL CITRATE [Suspect]
     Indication: PAIN IN EXTREMITY
     Dosage: CHANGED Q72H
     Route: 062
     Dates: start: 20050101

REACTIONS (2)
  - DRUG EFFECT DECREASED [None]
  - DRUG WITHDRAWAL SYNDROME [None]
